FAERS Safety Report 5855112-2 (Version None)
Quarter: 2008Q3

REPORT INFORMATION
  Report Type: 
  Country: None (occurrence: None)
  Receive Date: 20080822
  Receipt Date: 20080718
  Transmission Date: 20090109
  Serious: No
  Sender: FDA-Public Use
  Company Number: US-ABBOTT-08P-163-0464251-00

PATIENT
  Sex: Female
  Weight: 64.922 kg

DRUGS (5)
  1. SYNTHROID [Suspect]
     Indication: THYROID DISORDER
     Route: 048
     Dates: start: 20080627, end: 20080717
  2. SYNTHROID [Suspect]
     Route: 048
     Dates: start: 20080611, end: 20080618
  3. METOPROLOL SUCCINATE [Concomitant]
     Indication: BLOOD PRESSURE
     Route: 048
  4. ESTROGENS CONJUGATED [Concomitant]
     Indication: DRUG USE FOR UNKNOWN INDICATION
     Route: 048
  5. AMLODIPINE [Concomitant]
     Indication: CARDIAC DISORDER
     Route: 048

REACTIONS (9)
  - ACNE [None]
  - ARTHRALGIA [None]
  - BURNING SENSATION [None]
  - DRY SKIN [None]
  - HOT FLUSH [None]
  - HYPERHIDROSIS [None]
  - JOINT SWELLING [None]
  - OEDEMA PERIPHERAL [None]
  - PAIN IN EXTREMITY [None]
